FAERS Safety Report 18534065 (Version 1)
Quarter: 2020Q4

REPORT INFORMATION
  Report Type: Spontaneous
  Country: CN (occurrence: CN)
  Receive Date: 20201123
  Receipt Date: 20201123
  Transmission Date: 20210114
  Serious: Yes (Hospitalization)
  Sender: FDA-Public Use
  Company Number: CN-PFIZER INC-2020455597

PATIENT
  Age: 15 Year
  Sex: Female
  Weight: 41 kg

DRUGS (5)
  1. ZOLOFT [Suspect]
     Active Substance: SERTRALINE HYDROCHLORIDE
     Indication: DEPRESSION
     Dosage: 25 MG, 1X/DAY
     Route: 048
     Dates: start: 20201022, end: 20201027
  2. ZOLOFT [Suspect]
     Active Substance: SERTRALINE HYDROCHLORIDE
     Dosage: 50 MG, 1X/DAY
     Route: 048
     Dates: start: 20201027, end: 20201030
  3. PROZAC [Suspect]
     Active Substance: FLUOXETINE HYDROCHLORIDE
     Indication: DEPRESSION
     Dosage: 20 MG, 1X/DAY
     Route: 048
     Dates: start: 20201030, end: 20201107
  4. VITAMIN B6 [Suspect]
     Active Substance: PYRIDOXINE HYDROCHLORIDE
     Indication: DEPRESSION
     Dosage: 10 MG, 3X/DAY
     Route: 041
     Dates: start: 20201030, end: 20201107
  5. LORAZEPAM. [Suspect]
     Active Substance: LORAZEPAM
     Indication: DEPRESSION
     Dosage: 1 MG, 1X/DAY (BEDTIME)
     Route: 048
     Dates: start: 20201030, end: 20201107

REACTIONS (9)
  - Drug eruption [Not Recovered/Not Resolved]
  - Dizziness [Unknown]
  - Rash erythematous [Recovering/Resolving]
  - Skin exfoliation [Unknown]
  - Nausea [Unknown]
  - Discomfort [Unknown]
  - Scratch [Unknown]
  - Decreased appetite [Unknown]
  - Pruritus [Not Recovered/Not Resolved]

NARRATIVE: CASE EVENT DATE: 20201030
